FAERS Safety Report 24894289 (Version 2)
Quarter: 2025Q1

REPORT INFORMATION
  Report Type: Spontaneous
  Country: JP (occurrence: JP)
  Receive Date: 20250128
  Receipt Date: 20250219
  Transmission Date: 20250409
  Serious: Yes (Other)
  Sender: ABBVIE
  Company Number: JP-ABBVIE-6105084

PATIENT
  Age: 20 Year
  Sex: Male

DRUGS (2)
  1. SKYRIZI [Suspect]
     Active Substance: RISANKIZUMAB-RZAA
     Indication: Crohn^s disease
     Route: 058
     Dates: start: 20231215
  2. MESALAMINE [Concomitant]
     Active Substance: MESALAMINE
     Indication: Crohn^s disease

REACTIONS (1)
  - Rectal stenosis [Recovered/Resolved]

NARRATIVE: CASE EVENT DATE: 20240419
